FAERS Safety Report 5236829-X (Version None)
Quarter: 2007Q1

REPORT INFORMATION
  Report Type: 
  Country: None (occurrence: None)
  Receive Date: 20061208
  Receipt Date: 20050518
  Transmission Date: 20070707
  Serious: Yes (Other)
  Sender: FDA-Public Use
  Company Number: 2005UW07671

PATIENT
  Age: 67 Year
  Sex: Male
  Weight: 184 kg

DRUGS (2)
  1. CRESTOR [Suspect]
     Indication: BLOOD CHOLESTEROL INCREASED
     Dosage: 5 MG PO
     Route: 048
     Dates: start: 20040601
  2. ALLOPURINOL [Concomitant]

REACTIONS (1)
  - POLLAKIURIA [None]
